FAERS Safety Report 10144215 (Version 4)
Quarter: 2014Q2

REPORT INFORMATION
  Report Type: Report from Study
  Country: FR (occurrence: FR)
  Receive Date: 20140430
  Receipt Date: 20140602
  Transmission Date: 20141212
  Serious: Yes (Other)
  Sender: FDA-Public Use
  Company Number: FR-ASTELLAS-2014EU003513

PATIENT
  Age: 2 Year
  Sex: Male
  Weight: 14 kg

DRUGS (12)
  1. TACROLIMUS [Suspect]
     Indication: PROPHYLAXIS AGAINST TRANSPLANT REJECTION
     Dosage: 3.2 MG (MAX 1.6 MG TWICE DAILY)
     Route: 048
     Dates: start: 20130426, end: 20130820
  2. CELLCEPT                           /01275102/ [Suspect]
     Indication: PROPHYLAXIS AGAINST TRANSPLANT REJECTION
     Route: 048
     Dates: start: 20130421, end: 20130612
  3. CERTICAN [Suspect]
     Indication: PROPHYLAXIS AGAINST TRANSPLANT REJECTION
     Route: 048
     Dates: start: 20130612
  4. SIMULECT [Suspect]
     Indication: PROPHYLAXIS AGAINST TRANSPLANT REJECTION
     Route: 042
     Dates: start: 20130421, end: 20130428
  5. INEXIUM                            /01479302/ [Concomitant]
     Indication: PROPHYLAXIS AGAINST GASTROINTESTINAL ULCER
     Route: 048
     Dates: start: 20130421, end: 201404
  6. FUNGIZONE [Concomitant]
     Indication: INFECTION PROPHYLAXIS
     Route: 048
     Dates: start: 20130426
  7. PENTACARINAT [Concomitant]
     Indication: INFECTION PROPHYLAXIS
     Route: 050
     Dates: start: 20130605
  8. CETIRIZINE [Concomitant]
     Indication: HYPERSENSITIVITY
     Route: 065
  9. LORATADINE [Concomitant]
     Indication: HYPERSENSITIVITY
     Route: 065
  10. CORTICOSTEROID NOS [Concomitant]
     Indication: IMMUNOSUPPRESSION
     Dosage: UNK UNK, OTHER
     Route: 048
  11. CORTICOSTEROID NOS [Concomitant]
     Indication: PROPHYLAXIS
     Dosage: UNK, UNKNOWN FREQ.
     Route: 065
     Dates: start: 20130421
  12. PREDNISONE [Concomitant]
     Indication: IMMUNOSUPPRESSANT DRUG THERAPY
     Dosage: UNK UNK, UNKNOWN FREQ.
     Route: 065
     Dates: start: 20130422, end: 20140120

REACTIONS (3)
  - Epstein-Barr virus associated lymphoproliferative disorder [Recovered/Resolved]
  - Histology abnormal [Recovering/Resolving]
  - Immunosuppressant drug level increased [Unknown]
